FAERS Safety Report 12358902 (Version 2)
Quarter: 2017Q1

REPORT INFORMATION
  Report Type: Spontaneous
  Country: FR (occurrence: FR)
  Receive Date: 20160512
  Receipt Date: 20170210
  Transmission Date: 20170428
  Serious: Yes (Hospitalization)
  Sender: FDA-Public Use
  Company Number: FR-OCTA-GAM16016FR

PATIENT
  Age: 38 Year
  Sex: Male
  Weight: 90 kg

DRUGS (4)
  1. SPECIAFOLDINE [Concomitant]
     Active Substance: FOLIC ACID
     Indication: POLYMYOSITIS
     Route: 048
     Dates: start: 20151112
  2. OCTAGAM IMMUNE GLOBULIN (HUMAN) [Suspect]
     Active Substance: HUMAN IMMUNOGLOBULIN G
     Indication: POLYMYOSITIS
     Dosage: 4 DAYS OF 40 G DAILY, EVERY 4 WEEKS
     Route: 042
     Dates: start: 20160202, end: 20160205
  3. CORTANCYL [Concomitant]
     Active Substance: PREDNISONE
     Indication: POLYMYOSITIS
     Dosage: STARTED WITH 90 G DAILY, THEN 40 G, 60 G
     Route: 048
     Dates: start: 201508
  4. METHOTREXATE. [Suspect]
     Active Substance: METHOTREXATE
     Indication: PRODUCT USED FOR UNKNOWN INDICATION
     Dosage: 10-15 MG WEEKLY
     Route: 048
     Dates: start: 20151112

REACTIONS (3)
  - Headache [Recovered/Resolved]
  - Conjunctivitis [Recovered/Resolved]
  - Rash pruritic [Recovered/Resolved]

NARRATIVE: CASE EVENT DATE: 20160204
